FAERS Safety Report 7422201-0 (Version None)
Quarter: 2011Q2

REPORT INFORMATION
  Report Type: 
  Country: None (occurrence: None)
  Receive Date: 20110418
  Receipt Date: 20110323
  Transmission Date: 20111010
  Serious: Yes (Hospitalization)
  Sender: FDA-Public Use
  Company Number: US-BAYER-2010-006629

PATIENT
  Age: 37 Year
  Sex: Female

DRUGS (1)
  1. YAZ [Suspect]
     Indication: ACNE
     Dosage: UNK
     Route: 048
     Dates: start: 20081001, end: 20081201

REACTIONS (7)
  - COUGH [None]
  - PULMONARY EMBOLISM [None]
  - DYSPNOEA [None]
  - RESPIRATORY TRACT INFECTION [None]
  - LETHARGY [None]
  - CHEST PAIN [None]
  - FATIGUE [None]
